FAERS Safety Report 6463311-4 (Version None)
Quarter: 2009Q4

REPORT INFORMATION
  Report Type: 
  Country: None (occurrence: None)
  Receive Date: 20091130
  Receipt Date: 20090622
  Transmission Date: 20100525
  Serious: Yes (Other)
  Sender: FDA-Public Use
  Company Number: US-AMGEN-QUU352821

PATIENT
  Sex: Male

DRUGS (2)
  1. ENBREL [Suspect]
     Indication: RHEUMATOID ARTHRITIS
     Route: 058
     Dates: start: 20060901
  2. SULFASALAZINE [Concomitant]
     Route: 048

REACTIONS (3)
  - FUNGAL SKIN INFECTION [None]
  - PARANASAL CYST [None]
  - SINUSITIS FUNGAL [None]
